FAERS Safety Report 19325408 (Version 1)
Quarter: 2021Q2

REPORT INFORMATION
  Report Type: Spontaneous
  Country: SE (occurrence: SE)
  Receive Date: 20210528
  Receipt Date: 20210528
  Transmission Date: 20210717
  Serious: Yes (Hospitalization, Other)
  Sender: FDA-Public Use
  Company Number: SE-SA-2021SA169021

PATIENT
  Age: 53 Year
  Sex: Female

DRUGS (2)
  1. TOUJEO [Concomitant]
     Active Substance: INSULIN GLARGINE
     Dosage: UNK
     Route: 065
  2. INSULIN LISPRO [Suspect]
     Active Substance: INSULIN LISPRO
     Dosage: 6 IU
     Route: 065
     Dates: start: 202104, end: 202104

REACTIONS (5)
  - Hypoglycaemia [Recovering/Resolving]
  - Intentional self-injury [Recovering/Resolving]
  - Poisoning [Recovering/Resolving]
  - Loss of consciousness [Recovering/Resolving]
  - Intentional overdose [Recovering/Resolving]

NARRATIVE: CASE EVENT DATE: 20210420
